FAERS Safety Report 23813792 (Version 3)
Quarter: 2025Q1

REPORT INFORMATION
  Report Type: Spontaneous
  Country: US (occurrence: US)
  Receive Date: 20240503
  Receipt Date: 20250313
  Transmission Date: 20250409
  Serious: No
  Sender: ELI LILLY AND COMPANY
  Company Number: US-ELI_LILLY_AND_COMPANY-US202405001543

PATIENT
  Age: 51 Year
  Sex: Female

DRUGS (1)
  1. VERZENIO [Suspect]
     Active Substance: ABEMACICLIB
     Indication: Breast cancer female
     Dosage: 150 MG, BID
     Route: 048

REACTIONS (9)
  - Oropharyngeal pain [Unknown]
  - Pneumonia [Recovering/Resolving]
  - Red blood cell count decreased [Unknown]
  - Haemoglobin decreased [Unknown]
  - Diarrhoea [Unknown]
  - Nausea [Unknown]
  - Fatigue [Unknown]
  - Alopecia [Unknown]
  - White blood cell count decreased [Unknown]
